FAERS Safety Report 17914969 (Version 2)
Quarter: 2020Q3

REPORT INFORMATION
  Report Type: Spontaneous
  Country: US (occurrence: US)
  Receive Date: 20200618
  Receipt Date: 20200723
  Transmission Date: 20201103
  Serious: Yes (Death, Life-Threatening, Other)
  Sender: FDA-Public Use
  Company Number: US-GILEAD-2020-0473383

PATIENT
  Age: 51 Year
  Sex: Female
  Weight: 57.1 kg

DRUGS (44)
  1. SODIUM BICARBONATE. [Concomitant]
     Active Substance: SODIUM BICARBONATE
     Indication: ACIDOSIS
     Dosage: 50 MEQ
     Route: 042
     Dates: start: 20200520, end: 20200521
  2. FLUTICASONE. [Concomitant]
     Active Substance: FLUTICASONE
     Indication: DYSPNOEA
     Dosage: 220 MCG
     Route: 055
     Dates: start: 20200513, end: 20200521
  3. PYRIDOXINE [Concomitant]
     Active Substance: PYRIDOXINE
     Indication: VITAMIN SUPPLEMENTATION
     Dosage: 20 MG
     Route: 048
     Dates: start: 20200513, end: 20200521
  4. ATORVASTATIN [Concomitant]
     Active Substance: ATORVASTATIN
     Indication: HYPERLIPIDAEMIA
     Dosage: 10 MG
     Route: 048
     Dates: start: 20200512, end: 20200521
  5. BUSPIRONE [Concomitant]
     Active Substance: BUSPIRONE HYDROCHLORIDE
     Indication: DEPRESSION
     Dosage: 10 MG
     Route: 048
     Dates: start: 20200512, end: 20200521
  6. CARBIDOPA?LEVODOPA?B [Concomitant]
     Active Substance: CARBIDOPA\LEVODOPA
     Indication: SPINA BIFIDA
     Dosage: 25 MG ? 100 MG
     Route: 048
     Dates: start: 20200513, end: 20200521
  7. RISPERIDONE. [Concomitant]
     Active Substance: RISPERIDONE
     Indication: PSYCHOTIC DISORDER
     Dosage: 0.5 MG
     Route: 048
     Dates: start: 20200513, end: 20200521
  8. NOREPINEPHRINE. [Concomitant]
     Active Substance: NOREPINEPHRINE
     Indication: HYPOTENSION
     Dosage: 15 MG
     Route: 042
     Dates: start: 20200520, end: 20200521
  9. DIGOXIN. [Concomitant]
     Active Substance: DIGOXIN
     Indication: HEART RATE IRREGULAR
     Dosage: 62.5 MCG
     Route: 048
     Dates: start: 20200517, end: 20200521
  10. FENTANYL 3 DAY HMT [Concomitant]
     Indication: SEDATION
     Dosage: 200 MCG
     Dates: start: 20200520, end: 20200521
  11. SOLU?MEDROL [Concomitant]
     Active Substance: METHYLPREDNISOLONE SODIUM SUCCINATE
     Indication: DYSPNOEA
     Dosage: 30 MG
     Route: 042
     Dates: start: 20200517, end: 20200521
  12. EFFEXOR XR [Concomitant]
     Active Substance: VENLAFAXINE HYDROCHLORIDE
     Indication: ANTIDEPRESSANT THERAPY
     Dosage: 150 MG
     Route: 048
     Dates: start: 20200513, end: 20200521
  13. VASOPRESSIN. [Concomitant]
     Active Substance: VASOPRESSIN
     Indication: HYPOTENSION
     Dosage: 40 UNITS
     Route: 042
     Dates: start: 20200521, end: 20200521
  14. CELEBREX [Concomitant]
     Active Substance: CELECOXIB
     Indication: ARTHRITIS
     Dosage: 100 MG
     Route: 048
     Dates: start: 20200513, end: 20200521
  15. PROPOFOL. [Concomitant]
     Active Substance: PROPOFOL
     Indication: SEDATION
     Dosage: 10 MCG
     Route: 042
     Dates: start: 20200520, end: 20200521
  16. SENOKOT?S [Concomitant]
     Active Substance: DOCUSATE SODIUM\SENNOSIDES
     Indication: CONSTIPATION
     Dosage: 1 DOSAGE FORM
     Route: 048
     Dates: start: 20200513, end: 20200521
  17. PEPCID [Concomitant]
     Active Substance: FAMOTIDINE
     Indication: GASTROOESOPHAGEAL REFLUX DISEASE
     Dosage: 20 MG
     Route: 042
     Dates: start: 20200518, end: 20200521
  18. MAGNESIUM CITRATE. [Concomitant]
     Active Substance: MAGNESIUM CITRATE
     Indication: CONSTIPATION
     Dosage: 30 ML
     Dates: start: 20200512, end: 20200521
  19. MIDODRINE [Concomitant]
     Active Substance: MIDODRINE
     Indication: HYPOTENSION
     Dosage: 5 MG
     Route: 048
     Dates: start: 20200517, end: 20200521
  20. TRAZODONE [Concomitant]
     Active Substance: TRAZODONE HYDROCHLORIDE
     Indication: INSOMNIA
  21. REMDESIVIR. [Suspect]
     Active Substance: REMDESIVIR
     Indication: COVID-19
     Dosage: 200 MG, QD
     Route: 042
     Dates: start: 20200519, end: 20200519
  22. REMDESIVIR. [Suspect]
     Active Substance: REMDESIVIR
     Dosage: 100 MG, QD
     Route: 042
     Dates: start: 20200520, end: 20200520
  23. ASCORBIC ACID. [Concomitant]
     Active Substance: ASCORBIC ACID
     Indication: VITAMIN SUPPLEMENTATION
     Dosage: 1500 MCG
     Route: 042
     Dates: start: 20200518, end: 20200521
  24. BISACODYL. [Concomitant]
     Active Substance: BISACODYL
     Indication: IRRITABLE BOWEL SYNDROME
     Dosage: 5 MG
     Route: 048
     Dates: start: 20200521, end: 20200521
  25. CLONAZEPAM. [Concomitant]
     Active Substance: CLONAZEPAM
     Indication: ANXIETY
     Dosage: 0.5 MG
     Route: 048
     Dates: start: 20200512, end: 20200521
  26. THIAMINE. [Concomitant]
     Active Substance: THIAMINE
     Indication: VITAMIN SUPPLEMENTATION
     Dosage: 200 MG
     Route: 040
     Dates: start: 20200518, end: 20200521
  27. VANCOMYCIN [Concomitant]
     Active Substance: VANCOMYCIN
     Indication: BACTERAEMIA
     Dosage: 750 MG
     Route: 042
     Dates: start: 20200514, end: 20200521
  28. GUAIFENESIN. [Concomitant]
     Active Substance: GUAIFENESIN
     Indication: OROPHARYNGEAL PAIN
     Dosage: 600 MG
     Route: 048
     Dates: start: 20200512, end: 20200521
  29. METOPROLOL. [Concomitant]
     Active Substance: METOPROLOL
  30. OXYGEN. [Concomitant]
     Active Substance: OXYGEN
  31. ALBUTEROL [SALBUTAMOL] [Concomitant]
     Active Substance: ALBUTEROL
     Indication: WHEEZING
     Dosage: 360 MCG
     Route: 055
     Dates: start: 20200518, end: 20200521
  32. CETIRIZINE [Concomitant]
     Active Substance: CETIRIZINE HYDROCHLORIDE
     Indication: HYPERSENSITIVITY
     Dosage: 10 MG
     Route: 048
     Dates: start: 20200513, end: 20200521
  33. PERIDEX [CHLORHEXIDINE GLUCONATE] [Concomitant]
     Indication: DRY MOUTH
     Dosage: 15 ML
     Route: 048
     Dates: start: 20200513, end: 20200521
  34. DECADRON [Concomitant]
     Active Substance: DEXAMETHASONE
     Indication: INFLAMMATION
     Dosage: 4 MG
     Route: 042
     Dates: start: 20200518, end: 20200521
  35. MONTELUKAST [Concomitant]
     Active Substance: MONTELUKAST SODIUM
     Indication: HYPERSENSITIVITY
     Dosage: 10 MG
     Route: 048
     Dates: start: 20200512, end: 20200521
  36. DEPACON [Concomitant]
     Active Substance: VALPROATE SODIUM
     Dosage: 150 MG
     Route: 042
     Dates: start: 20200519, end: 20200521
  37. EPINEPHRINE. [Concomitant]
     Active Substance: EPINEPHRINE
     Indication: BRADYCARDIA
     Dosage: 4 MG
     Route: 042
     Dates: start: 20200520, end: 20200521
  38. AZTREONAM. [Concomitant]
     Active Substance: AZTREONAM
     Indication: COVID-19
     Dosage: 2 G
     Route: 040
     Dates: start: 20200513, end: 20200521
  39. DEPAKOTE [Concomitant]
     Active Substance: DIVALPROEX SODIUM
  40. LOVENOX HP [Concomitant]
     Active Substance: ENOXAPARIN SODIUM
     Indication: THROMBOSIS PROPHYLAXIS
     Dosage: 60 MG
     Route: 058
     Dates: start: 20200519, end: 20200521
  41. CYANOCOBALAMIN. [Concomitant]
     Active Substance: CYANOCOBALAMIN
     Indication: VITAMIN SUPPLEMENTATION
     Dosage: 500 MCG
     Route: 048
     Dates: start: 20200513, end: 20200521
  42. ZANAFLEX [Concomitant]
     Active Substance: TIZANIDINE HYDROCHLORIDE
     Indication: MUSCLE SPASMS
     Dosage: 4 MG
     Route: 048
     Dates: start: 20200512, end: 20200521
  43. FIORINAL [Concomitant]
     Active Substance: ASPIRIN\BUTALBITAL\CAFFEINE
     Indication: HEADACHE
  44. DEXMEDETOMIDINE. [Concomitant]
     Active Substance: DEXMEDETOMIDINE
     Indication: SEDATION
     Dosage: 400 MCG
     Route: 042
     Dates: start: 20200520, end: 20200521

REACTIONS (4)
  - Respiratory failure [Fatal]
  - General physical health deterioration [Not Recovered/Not Resolved]
  - Pneumothorax [Not Recovered/Not Resolved]
  - Cardiac arrest [Fatal]

NARRATIVE: CASE EVENT DATE: 20200520
